FAERS Safety Report 5040975-3 (Version None)
Quarter: 2006Q3

REPORT INFORMATION
  Report Type: 
  Country: None (occurrence: None)
  Receive Date: 20060703
  Receipt Date: 20060627
  Transmission Date: 20061208
  Serious: Yes (Hospitalization)
  Sender: FDA-Public Use
  Company Number: US-BRISTOL-MYERS SQUIBB COMPANY-13426077

PATIENT
  Age: 70 Year
  Sex: Male

DRUGS (2)
  1. SINEMET CR [Suspect]
     Indication: PARKINSON'S DISEASE
     Route: 048
     Dates: start: 20040101
  2. MIRAPEX [Concomitant]

REACTIONS (2)
  - ANGINA PECTORIS [None]
  - CORONARY ARTERY STENOSIS [None]
